FAERS Safety Report 11795753 (Version 1)
Quarter: 2015Q4

REPORT INFORMATION
  Report Type: Report from Study
  Country: US (occurrence: None)
  Receive Date: 20151202
  Receipt Date: 20151202
  Transmission Date: 20160305
  Serious: Yes (Other)
  Sender: FDA-Public Use
  Company Number: US-MDT-ADR-2015-02280

PATIENT
  Age: 61 Year
  Sex: Female

DRUGS (2)
  1. DILAUDID [Suspect]
     Active Substance: HYDROMORPHONE HYDROCHLORIDE
  2. COMPOUNDED BACLOFEN INTRATHECAL - 30 0 MCG/ML [Suspect]
     Active Substance: BACLOFEN
     Indication: LUMBAR RADICULOPATHY
     Dosage: 310.76 MCG/DAY

REACTIONS (5)
  - No therapeutic response [None]
  - Device leakage [None]
  - Device kink [None]
  - Device breakage [None]
  - Pain [None]
